FAERS Safety Report 4348389-6 (Version None)
Quarter: 2004Q1

REPORT INFORMATION
  Report Type: 
  Country: None (occurrence: None)
  Receive Date: 20040325
  Receipt Date: 20031211
  Transmission Date: 20041129
  Serious: No
  Sender: FDA-Public Use
  Company Number: USA031050394

PATIENT
  Age: 63 Year
  Sex: Female

DRUGS (8)
  1. FORTEO [Suspect]
     Indication: OSTEOPOROSIS
     Dosage: 20 UG/DAY
     Dates: start: 20030930
  2. PREVACID [Concomitant]
  3. COMBIVENT [Concomitant]
  4. ADVAIR DISKUS 100/50 [Concomitant]
  5. SINGULAIR [Concomitant]
  6. ACTONEL [Concomitant]
  7. PREMARIN [Concomitant]
  8. THEOPHYLLINE [Concomitant]

REACTIONS (7)
  - BLISTER [None]
  - BONE PAIN [None]
  - HEADACHE [None]
  - NAUSEA [None]
  - PAIN [None]
  - VERTIGO [None]
  - VOMITING [None]
